FAERS Safety Report 7206285-0 (Version None)
Quarter: 2011Q1

REPORT INFORMATION
  Report Type: 
  Country: None (occurrence: None)
  Receive Date: 20110103
  Receipt Date: 20101221
  Transmission Date: 20110831
  Serious: Yes (Other)
  Sender: FDA-Public Use
  Company Number: PHHY2010CA87079

PATIENT
  Sex: Female

DRUGS (3)
  1. ACLASTA [Suspect]
     Indication: OSTEOPOROSIS
     Dosage: 5 MG
     Dates: start: 20080101
  2. ACLASTA [Suspect]
     Dosage: 5 MG
     Dates: start: 20091104
  3. ACLASTA [Suspect]
     Dosage: 5 MG
     Dates: start: 20100107

REACTIONS (1)
  - HIP SURGERY [None]
